FAERS Safety Report 13258593 (Version 1)
Quarter: 2017Q1

REPORT INFORMATION
  Report Type: Spontaneous
  Country: US (occurrence: US)
  Receive Date: 20170222
  Receipt Date: 20170222
  Transmission Date: 20170428
  Serious: No
  Sender: FDA-Public Use
  Company Number: US-B.I. PHARMACEUTICALS,INC./RIDGEFIELD-2017-BI-008807

PATIENT
  Sex: Female

DRUGS (1)
  1. ZANTAC [Suspect]
     Active Substance: RANITIDINE HYDROCHLORIDE
     Indication: DYSPEPSIA
     Dosage: BID;  FORM STRENGTH: 150 MG; FORMULATION: TABLET? ADMINISTRATION CORRECT? NO ?ACTION(S) TAKEN WITH P
     Route: 048
     Dates: start: 201608

REACTIONS (1)
  - Incorrect drug administration duration [Unknown]

NARRATIVE: CASE EVENT DATE: 201608
